FAERS Safety Report 10182517 (Version 1)
Quarter: 2014Q2

REPORT INFORMATION
  Report Type: Spontaneous
  Country: US (occurrence: None)
  Receive Date: 20140516
  Receipt Date: 20140516
  Transmission Date: 20141212
  Serious: Yes (Disabling)
  Sender: FDA-Public Use
  Company Number: TIR-03491

PATIENT
  Age: 40 Year
  Sex: Female
  Weight: 76.2 kg

DRUGS (2)
  1. TIROSINT [Suspect]
     Indication: HYPOTHYROIDISM
     Route: 048
     Dates: start: 201401, end: 201404
  2. CYTOMEL [Concomitant]

REACTIONS (6)
  - Dyspnoea [None]
  - Dyspnoea [None]
  - Dizziness [None]
  - Clumsiness [None]
  - Disorientation [None]
  - Impaired driving ability [None]
